FAERS Safety Report 4369723-7 (Version None)
Quarter: 2004Q2

REPORT INFORMATION
  Report Type: 
  Country: None (occurrence: None)
  Receive Date: 20040527
  Receipt Date: 20040519
  Transmission Date: 20050107
  Serious: Yes (Congenital Anomaly)
  Sender: FDA-Public Use
  Company Number: 04P-044-0261437-00

PATIENT
  Age: 2 Year

DRUGS (2)
  1. ODRIK                      (MAVIK) (TRANDOLAPRIL) [Suspect]
     Route: 064
  2. ETHANOL [Suspect]
     Route: 064

REACTIONS (2)
  - DRUG EXPOSURE DURING PREGNANCY [None]
  - SKULL MALFORMATION [None]
